FAERS Safety Report 4796677-1 (Version None)
Quarter: 2005Q4

REPORT INFORMATION
  Report Type: 
  Country: None (occurrence: None)
  Receive Date: 20051011
  Receipt Date: 20050302
  Transmission Date: 20060501
  Serious: Yes (Other)
  Sender: FDA-Public Use
  Company Number: US-JNJFOC-20050301364

PATIENT
  Age: 53 Year
  Sex: Female

DRUGS (1)
  1. ULTRACET [Suspect]
     Dates: start: 20041201

REACTIONS (3)
  - ANXIETY [None]
  - DECREASED APPETITE [None]
  - SUICIDAL IDEATION [None]
